FAERS Safety Report 8877059 (Version 1)
Quarter: 2012Q4

REPORT INFORMATION
  Report Type: Report from Study
  Country: US (occurrence: US)
  Receive Date: 20121030
  Receipt Date: 20121030
  Transmission Date: 20130627
  Serious: No
  Sender: FDA-Public Use
  Company Number: US-ABBOTT-12P-163-0974472-00

PATIENT
  Sex: Female
  Weight: 74.91 kg

DRUGS (8)
  1. LUPRON DEPOT 3.75 MG [Suspect]
     Indication: UTERINE LEIOMYOMA
     Route: 030
     Dates: start: 20120814
  2. WARFARIN [Concomitant]
     Indication: THROMBOSIS
  3. WARFARIN [Concomitant]
     Indication: CYTOGENETIC ABNORMALITY
  4. JOLIVETTE [Concomitant]
     Indication: ORAL CONTRACEPTION
  5. TRAZODONE [Concomitant]
     Indication: SLEEP DISORDER THERAPY
  6. CLARITIN [Concomitant]
     Indication: HYPERSENSITIVITY
  7. XANAX [Concomitant]
     Indication: SLEEP DISORDER THERAPY
  8. ULTRAM [Concomitant]
     Indication: PAIN

REACTIONS (4)
  - Vaginal discharge [Not Recovered/Not Resolved]
  - Nausea [Not Recovered/Not Resolved]
  - Headache [Not Recovered/Not Resolved]
  - Mood altered [Not Recovered/Not Resolved]
